FAERS Safety Report 7008453-X (Version None)
Quarter: 2010Q3

REPORT INFORMATION
  Report Type: 
  Country: None (occurrence: None)
  Receive Date: 20100922
  Receipt Date: 20100910
  Transmission Date: 20110219
  Serious: Yes (Hospitalization)
  Sender: FDA-Public Use
  Company Number: FR-WYE-G06649610

PATIENT
  Sex: Female

DRUGS (13)
  1. EFFEXOR XR [Suspect]
     Indication: DEPRESSION
     Route: 048
     Dates: start: 20090101, end: 20100108
  2. SPIRONOLACTONE [Concomitant]
     Route: 048
  3. NEXIUM [Concomitant]
     Route: 048
  4. LOXAPAC [Concomitant]
     Route: 048
  5. VITAMIN D3 [Concomitant]
     Route: 048
  6. HEMIGOXINE NATIVELLE [Concomitant]
     Route: 048
     Dates: end: 20100101
  7. HEMIGOXINE NATIVELLE [Concomitant]
     Dosage: UNKNOWN
     Route: 048
     Dates: start: 20100101
  8. FUNGIZONE [Concomitant]
     Route: 042
  9. DOLIPRANE [Concomitant]
     Route: 048
  10. ARICEPT [Concomitant]
     Indication: DEMENTIA ALZHEIMER'S TYPE
     Route: 048
  11. LEVOTHYROXINE SODIUM [Concomitant]
     Route: 048
  12. MEMANTINE HCL [Suspect]
     Indication: DEMENTIA ALZHEIMER'S TYPE
     Route: 048
     Dates: start: 20080101, end: 20100108
  13. SERETIDE [Concomitant]
     Route: 055

REACTIONS (2)
  - GENERAL PHYSICAL HEALTH DETERIORATION [None]
  - PANCREATITIS ACUTE [None]
